FAERS Safety Report 11195061 (Version 1)
Quarter: 2015Q2

REPORT INFORMATION
  Report Type: Spontaneous
  Country: US (occurrence: None)
  Receive Date: 20150615
  Receipt Date: 20150615
  Transmission Date: 20150821
  Serious: Yes (Other)
  Sender: FDA-Public Use
  Company Number: None

PATIENT
  Sex: Female
  Weight: 73.03 kg

DRUGS (1)
  1. OXYTOCIN 20 UNITS/1000ML [Suspect]
     Active Substance: OXYTOCIN
     Indication: INDUCED LABOUR
     Dosage: 1 TO 2D MILLIUNIT/MIN TITRATED
     Route: 042
     Dates: start: 20150611, end: 20150611

REACTIONS (2)
  - Failed induction of labour [None]
  - Caesarean section [None]

NARRATIVE: CASE EVENT DATE: 20150611
